FAERS Safety Report 6642653-3 (Version None)
Quarter: 2010Q1

REPORT INFORMATION
  Report Type: 
  Country: None (occurrence: None)
  Receive Date: 20100319
  Receipt Date: 20100315
  Transmission Date: 20100710
  Serious: Yes (Life-Threatening, Other)
  Sender: FDA-Public Use
  Company Number: TR-ASTRAZENECA-2010SE11072

PATIENT
  Age: 57 Year
  Sex: Female
  Weight: 72 kg

DRUGS (2)
  1. CRESTOR [Suspect]
     Indication: HYPERCHOLESTEROLAEMIA
     Route: 048
     Dates: start: 20100107, end: 20100312
  2. EUTHROX [Concomitant]
     Indication: THYROID HORMONE REPLACEMENT THERAPY
     Route: 048
     Dates: start: 20091201

REACTIONS (6)
  - DYSPHAGIA [None]
  - DYSPNOEA [None]
  - MYALGIA [None]
  - NAUSEA [None]
  - PYREXIA [None]
  - URINE COLOUR ABNORMAL [None]
